FAERS Safety Report 12144252 (Version 1)
Quarter: 2016Q1

REPORT INFORMATION
  Report Type: Spontaneous
  Country: US (occurrence: None)
  Receive Date: 20160303
  Receipt Date: 20160303
  Transmission Date: 20160526
  Serious: Yes (Life-Threatening, Disabling, Other)
  Sender: FDA-Public Use
  Company Number: None

PATIENT
  Age: 3 Month
  Sex: Male
  Weight: 65.77 kg

DRUGS (18)
  1. ADVAIR HFA [Concomitant]
     Active Substance: FLUTICASONE PROPIONATE\SALMETEROL XINAFOATE
  2. MONTETLYCAST [Concomitant]
  3. OMEPRAZOLE. [Concomitant]
     Active Substance: OMEPRAZOLE
  4. ST. JOHN^S WORT [Concomitant]
     Active Substance: ST. JOHN^S WORT
  5. FLUTICASON [Concomitant]
     Active Substance: FLUTICASONE\FLUTICASONE PROPIONATE
  6. FORTEO [Suspect]
     Active Substance: TERIPARATIDE
     Indication: OSTEOPOROSIS
     Route: 030
     Dates: start: 20151022
  7. XYTAL [Concomitant]
  8. BENEZAPRIL [Concomitant]
  9. PROLIA [Concomitant]
     Active Substance: DENOSUMAB
  10. AMLODIPINE [Concomitant]
     Active Substance: AMLODIPINE BESYLATE
  11. ATIVAN [Concomitant]
     Active Substance: LORAZEPAM
  12. GAPAPENTINE ARROW [Concomitant]
     Active Substance: GABAPENTIN
  13. VITAMIN D [Concomitant]
     Active Substance: CHOLECALCIFEROL
  14. FENOFIBRATE. [Concomitant]
     Active Substance: FENOFIBRATE
  15. OXYBUTININ [Concomitant]
     Active Substance: OXYBUTYNIN
  16. TAMSOLOSIN [Concomitant]
  17. MULTI VITAMINS /MINERALS [Concomitant]
  18. CALCIUM [Concomitant]
     Active Substance: CALCIUM

REACTIONS (5)
  - Groin pain [None]
  - Blood pressure systolic increased [None]
  - Myalgia [None]
  - Muscular weakness [None]
  - Malaise [None]

NARRATIVE: CASE EVENT DATE: 20151209
